FAERS Safety Report 9629574 (Version 1)
Quarter: 2013Q4

REPORT INFORMATION
  Report Type: Report from Study
  Country: GB (occurrence: GB)
  Receive Date: 20131017
  Receipt Date: 20131017
  Transmission Date: 20140711
  Serious: Yes (Other)
  Sender: FDA-Public Use
  Company Number: GB-VERTEX PHARMACEUTICALS INC-2013-010443

PATIENT
  Age: 22 Year
  Sex: Female

DRUGS (3)
  1. VX-950 (TELAPREVIR) [Suspect]
     Indication: HEPATITIS C
     Dosage: 1125 MG, BID
     Route: 048
     Dates: start: 20130705, end: 20130928
  2. RIBAVIRIN [Concomitant]
     Indication: HEPATITIS C
     Dosage: UNK UNK, BID
     Route: 048
     Dates: start: 20130705
  3. INTERFERON [Concomitant]
     Indication: HEPATITIS C
     Dosage: UNK, QW
     Route: 058
     Dates: start: 20130705

REACTIONS (3)
  - Menorrhagia [Not Recovered/Not Resolved]
  - Polymenorrhoea [Not Recovered/Not Resolved]
  - White blood cell count decreased [Not Recovered/Not Resolved]
